FAERS Safety Report 8816528 (Version 1)
Quarter: 2012Q4

REPORT INFORMATION
  Report Type: Spontaneous
  Country: US (occurrence: None)
  Receive Date: 20120927
  Receipt Date: 20120927
  Transmission Date: 20130627
  Serious: Yes (Other)
  Sender: FDA-Public Use
  Company Number: USA/USA/12/0026021

PATIENT
  Age: 47 Year
  Sex: Female
  Weight: 70.31 kg

DRUGS (3)
  1. CETIRIZINE [Suspect]
     Indication: MULTIPLE ALLERGIES
     Route: 048
  2. CETIRIZINE [Suspect]
     Indication: MULTIPLE ALLERGIES
     Route: 048
     Dates: start: 20120912, end: 20120922
  3. VITAMINS (KAPSOVIT) [Concomitant]

REACTIONS (3)
  - Fatigue [None]
  - Depression [None]
  - Emotional disorder [None]
